FAERS Safety Report 8525081-5 (Version None)
Quarter: 2012Q3

REPORT INFORMATION
  Report Type: 
  Country: None (occurrence: None)
  Receive Date: 20120720
  Receipt Date: 20120712
  Transmission Date: 20120928
  Serious: Yes (Hospitalization)
  Sender: FDA-Public Use
  Company Number: BE-BAXTER-2012BAX010461

PATIENT
  Sex: Male

DRUGS (4)
  1. NOVOSEVEN [Suspect]
     Route: 065
     Dates: start: 20120601, end: 20120627
  2. FEIBA [Suspect]
     Dosage: 3000 UE PER DAY
     Route: 042
     Dates: start: 20120601
  3. FEIBA [Suspect]
     Dosage: 3000 UE PER DAY
     Route: 042
     Dates: start: 20120704
  4. FEIBA [Suspect]
     Dosage: 3000 UE PER DAY
     Route: 042
     Dates: start: 20120703

REACTIONS (3)
  - ABDOMINAL PAIN [None]
  - HAEMORRHAGE [None]
  - PALLOR [None]
